FAERS Safety Report 9946042 (Version 1)
Quarter: 2014Q1

REPORT INFORMATION
  Report Type: Spontaneous
  Country: US (occurrence: US)
  Receive Date: 20140303
  Receipt Date: 20140303
  Transmission Date: 20141002
  Serious: No
  Sender: FDA-Public Use
  Company Number: US-AMGEN-USASP2013070975

PATIENT
  Age: 28 Year
  Sex: Female
  Weight: 49.89 kg

DRUGS (4)
  1. ENBREL [Suspect]
     Indication: PRODUCT USED FOR UNKNOWN INDICATION
     Dosage: 50 MG, QWK
     Route: 058
  2. HUMIRA [Concomitant]
     Indication: PSORIASIS
     Dosage: UNK
  3. HUMIRA [Concomitant]
     Indication: PSORIATIC ARTHROPATHY
  4. ALPRAZOLAM [Concomitant]
     Dosage: 0.5 MG, PRN

REACTIONS (4)
  - Drug hypersensitivity [Unknown]
  - Injection site rash [Unknown]
  - Injection site hypersensitivity [Unknown]
  - Injection site swelling [Unknown]
